FAERS Safety Report 23907832 (Version 1)
Quarter: 2024Q2

REPORT INFORMATION
  Report Type: Spontaneous
  Country: US (occurrence: None)
  Receive Date: 20240524
  Receipt Date: 20240524
  Transmission Date: 20240716
  Serious: No
  Sender: FDA-Public Use
  Company Number: None

PATIENT
  Age: 36 Year
  Sex: Female
  Weight: 81.6 kg

DRUGS (1)
  1. IOHEXOL [Suspect]
     Active Substance: IOHEXOL

REACTIONS (4)
  - Sneezing [None]
  - Eye pruritus [None]
  - Eye irritation [None]
  - Contrast media reaction [None]

NARRATIVE: CASE EVENT DATE: 20240520
